FAERS Safety Report 9838778 (Version 1)
Quarter: 2014Q1

REPORT INFORMATION
  Report Type: Spontaneous
  Country: DE (occurrence: FR)
  Receive Date: 20140123
  Receipt Date: 20140123
  Transmission Date: 20141002
  Serious: Yes (Hospitalization)
  Sender: FDA-Public Use
  Company Number: FR-FRI-1000052953

PATIENT
  Age: 71 Year
  Sex: Female

DRUGS (9)
  1. MEMANTINE [Suspect]
     Indication: DEMENTIA ALZHEIMER^S TYPE
     Dosage: 1 DF
     Route: 048
     Dates: start: 20130807, end: 20131025
  2. NORSET [Suspect]
     Indication: DEPRESSION
     Route: 048
     Dates: start: 20131016, end: 20131019
  3. NORSET [Suspect]
     Route: 048
     Dates: start: 20131020, end: 20131025
  4. AMLOR [Concomitant]
     Dosage: 1 DF
     Route: 048
  5. LEVOTHYROX [Concomitant]
     Dosage: 1 DF
     Route: 048
  6. SERESTA [Concomitant]
     Dosage: 1 DF
     Route: 048
  7. FOLIC ACID [Concomitant]
     Dosage: 10 MG
     Route: 048
  8. DIFFU K [Concomitant]
     Dosage: 1 DF
     Route: 048
  9. FORLAX [Concomitant]
     Dosage: 1 DF
     Route: 048
     Dates: end: 20131028

REACTIONS (2)
  - Jaundice cholestatic [Recovered/Resolved]
  - Hepatocellular injury [Recovered/Resolved]
